FAERS Safety Report 8264217-0 (Version None)
Quarter: 2012Q2

REPORT INFORMATION
  Report Type: 
  Country: None (occurrence: None)
  Receive Date: 20120406
  Receipt Date: 20120326
  Transmission Date: 20120825
  Serious: Yes (Hospitalization)
  Sender: FDA-Public Use
  Company Number: US-JNJFOC-20100706893

PATIENT
  Sex: Male
  Weight: 12.5 kg

DRUGS (19)
  1. INFLIXIMAB [Suspect]
     Indication: CROHN'S DISEASE
     Route: 042
     Dates: start: 20110325
  2. FERROUS SULFATE TAB [Concomitant]
  3. PREVACID [Concomitant]
  4. INFLIXIMAB [Suspect]
     Route: 042
     Dates: start: 20091111
  5. MESALAMINE [Concomitant]
     Route: 054
  6. INFLIXIMAB [Suspect]
     Route: 042
  7. INFLIXIMAB [Suspect]
     Route: 042
     Dates: start: 20100618
  8. ANTIBIOTICS [Concomitant]
     Indication: INFLAMMATORY BOWEL DISEASE
  9. MULTI-VITAMINS [Concomitant]
  10. PROBIOTICS [Concomitant]
  11. BACTRIM [Concomitant]
  12. HYDROCODONE BITARTRATE [Concomitant]
  13. MORPHINE [Concomitant]
  14. KEFLEX [Concomitant]
  15. INFLIXIMAB [Suspect]
     Route: 042
     Dates: start: 20101122, end: 20101122
  16. INFLIXIMAB [Suspect]
     Route: 042
     Dates: start: 20101014
  17. ACETAMINOPHEN [Concomitant]
  18. PREDNISONE TAB [Concomitant]
  19. DEXTRAN INJ [Concomitant]

REACTIONS (2)
  - INFLAMMATORY BOWEL DISEASE [None]
  - CROHN'S DISEASE [None]
